FAERS Safety Report 7217884-4 (Version None)
Quarter: 2011Q1

REPORT INFORMATION
  Report Type: 
  Country: None (occurrence: None)
  Receive Date: 20110110
  Receipt Date: 20070308
  Transmission Date: 20110831
  Serious: Yes (Hospitalization)
  Sender: FDA-Public Use
  Company Number: PHRM2007FR01033

PATIENT
  Age: 83 Year
  Sex: Male

DRUGS (6)
  1. LYSANXIA [Suspect]
     Dosage: 1 DF, QD
     Route: 048
     Dates: end: 20061211
  2. STALEVO 100 [Concomitant]
     Indication: PARKINSON'S DISEASE
     Dosage: 175/1000/700 MG PER DAY
     Route: 048
  3. MODOPAR [Concomitant]
     Indication: PARKINSON'S DISEASE
     Dosage: 50/200 MG PER DAY
     Route: 048
  4. SEROPRAM [Concomitant]
     Indication: DEPRESSION
     Dosage: 20 MG, QD
     Route: 048
  5. IMOVANE [Suspect]
     Dosage: 7.5 MG, QD
     Route: 048
     Dates: end: 20061211
  6. EXELON [Suspect]
     Indication: PARKINSON'S DISEASE
     Dosage: 4.5 MG MORNING, 6 MG EVENING
     Route: 048
     Dates: end: 20061211

REACTIONS (14)
  - SOMNOLENCE [None]
  - BALANCE DISORDER [None]
  - ASPARTATE AMINOTRANSFERASE INCREASED [None]
  - DEPRESSED LEVEL OF CONSCIOUSNESS [None]
  - SPEECH DISORDER [None]
  - BLOOD CREATINE PHOSPHOKINASE INCREASED [None]
  - DISORIENTATION [None]
  - FALL [None]
  - CONFUSIONAL STATE [None]
  - COMA [None]
  - RHABDOMYOLYSIS [None]
  - C-REACTIVE PROTEIN INCREASED [None]
  - CREATININE RENAL CLEARANCE DECREASED [None]
  - DISSOCIATIVE FUGUE [None]
